FAERS Safety Report 16394430 (Version 1)
Quarter: 2019Q3

REPORT INFORMATION
  Report Type: Spontaneous
  Country: US (occurrence: US)
  Receive Date: 20190604
  Receipt Date: 20190604
  Transmission Date: 20191004
  Serious: Yes (Hospitalization)
  Sender: FDA-Public Use
  Company Number: None

PATIENT
  Age: 62 Year
  Sex: Female

DRUGS (5)
  1. MONTELUKAST 10 MG TABLET [Concomitant]
  2. LOSARTAN POTASSIUM 50MG TABLETS [Concomitant]
     Active Substance: LOSARTAN POTASSIUM
     Dates: start: 20190226
  3. BREO ELLIPTA INH 100-25 [Concomitant]
     Dates: start: 20190512
  4. DICLOFENAC GEL 1% [Concomitant]
     Active Substance: DICLOFENAC
     Dates: start: 20190327, end: 20190427
  5. XELJANZ XR [Suspect]
     Active Substance: TOFACITINIB CITRATE
     Indication: PSORIATIC ARTHROPATHY
     Route: 048
     Dates: start: 20180302

REACTIONS (2)
  - Pulmonary congestion [None]
  - Asthma [None]

NARRATIVE: CASE EVENT DATE: 20190430
